FAERS Safety Report 4510071-X (Version None)
Quarter: 2004Q4

REPORT INFORMATION
  Report Type: 
  Country: None (occurrence: None)
  Receive Date: 20041124
  Receipt Date: 20041117
  Transmission Date: 20050328
  Serious: Yes (Other)
  Sender: FDA-Public Use
  Company Number: PHNU2004DE03904

PATIENT
  Sex: Female

DRUGS (2)
  1. CO-DIOVAN [Suspect]
     Indication: HYPERTENSION
     Dates: start: 20020101, end: 20040701
  2. ISOPTIN [Concomitant]

REACTIONS (2)
  - OEDEMA PERIPHERAL [None]
  - RHEUMATOID ARTHRITIS [None]
